FAERS Safety Report 8278542-0 (Version None)
Quarter: 2012Q2

REPORT INFORMATION
  Report Type: 
  Country: None (occurrence: None)
  Receive Date: 20120412
  Receipt Date: 20111110
  Transmission Date: 20120825
  Serious: No
  Sender: FDA-Public Use
  Company Number: US-ASTRAZENECA-2011SE68524

PATIENT
  Age: 73 Year
  Sex: Female
  Weight: 75.7 kg

DRUGS (3)
  1. HIGH BLOOD PRESSURE PILLS [Concomitant]
  2. NEXIUM [Suspect]
     Indication: GASTROOESOPHAGEAL REFLUX DISEASE
     Route: 048
  3. SYNTHROID [Concomitant]

REACTIONS (7)
  - HEPATIC ENZYME INCREASED [None]
  - SLEEP DISORDER DUE TO A GENERAL MEDICAL CONDITION [None]
  - MALAISE [None]
  - GASTROOESOPHAGEAL REFLUX DISEASE [None]
  - DRUG DOSE OMISSION [None]
  - BURNING SENSATION [None]
  - WEIGHT DECREASED [None]
